FAERS Safety Report 4750146-3 (Version None)
Quarter: 2005Q3

REPORT INFORMATION
  Report Type: 
  Country: None (occurrence: None)
  Receive Date: 20050823
  Receipt Date: 20050815
  Transmission Date: 20060218
  Serious: No
  Sender: FDA-Public Use
  Company Number: ES-BOEHRINGER INGELHEIM PHARMACEUTICALS, INC.-2005-DE-03208GD

PATIENT
  Age: 82 Year
  Sex: Female

DRUGS (4)
  1. IPRATROPIUM BROMIDE [Suspect]
     Indication: BRONCHITIS ACUTE
     Route: 055
  2. ALBUTEROL SULFATE HFA [Concomitant]
     Indication: BRONCHITIS ACUTE
     Route: 055
  3. METHYLPREDNISOLONE [Concomitant]
     Indication: BRONCHITIS ACUTE
     Route: 042
  4. CEFTRIAXONE [Concomitant]
     Indication: BRONCHITIS ACUTE
     Route: 042

REACTIONS (4)
  - ANGLE CLOSURE GLAUCOMA [None]
  - BLINDNESS [None]
  - EYE PAIN [None]
  - MYDRIASIS [None]
